FAERS Safety Report 25556804 (Version 1)
Quarter: 2025Q3

REPORT INFORMATION
  Report Type: Spontaneous
  Country: CN (occurrence: CN)
  Receive Date: 20250715
  Receipt Date: 20250715
  Transmission Date: 20251021
  Serious: Yes (Other)
  Sender: ELI LILLY AND COMPANY
  Company Number: CN-ELI_LILLY_AND_COMPANY-CN202507009423

PATIENT
  Age: 44 Year
  Sex: Male

DRUGS (6)
  1. GEMCITABINE HYDROCHLORIDE [Suspect]
     Active Substance: GEMCITABINE HYDROCHLORIDE
     Indication: Metastases to lung
     Route: 065
  2. GEMCITABINE HYDROCHLORIDE [Suspect]
     Active Substance: GEMCITABINE HYDROCHLORIDE
     Indication: Metastases to lymph nodes
  3. CISPLATIN [Suspect]
     Active Substance: CISPLATIN
     Indication: Metastases to lung
     Route: 065
  4. CISPLATIN [Suspect]
     Active Substance: CISPLATIN
     Indication: Metastases to lymph nodes
  5. TORIPALIMAB [Suspect]
     Active Substance: TORIPALIMAB
     Indication: Metastases to lung
     Route: 065
  6. TORIPALIMAB [Suspect]
     Active Substance: TORIPALIMAB
     Indication: Metastases to lymph nodes

REACTIONS (3)
  - Toxicity to various agents [Unknown]
  - Neutropenia [Recovered/Resolved]
  - Myelosuppression [Recovered/Resolved]
